FAERS Safety Report 5668001-3 (Version None)
Quarter: 2008Q1

REPORT INFORMATION
  Report Type: 
  Country: None (occurrence: None)
  Receive Date: 20080315
  Receipt Date: 20080209
  Transmission Date: 20080703
  Serious: No
  Sender: FDA-Public Use
  Company Number: US-ABBOTT-08P-163-0437868-00

PATIENT
  Sex: Female
  Weight: 71.732 kg

DRUGS (1)
  1. HUMIRA [Suspect]
     Indication: PSORIATIC ARTHROPATHY
     Route: 058
     Dates: start: 20070201

REACTIONS (6)
  - FEELING HOT [None]
  - INFLUENZA [None]
  - NASAL CONGESTION [None]
  - NASOPHARYNGITIS [None]
  - PYREXIA [None]
  - RESPIRATORY TRACT CONGESTION [None]
